FAERS Safety Report 11114798 (Version 1)
Quarter: 2015Q2

REPORT INFORMATION
  Report Type: Spontaneous
  Country: DE (occurrence: None)
  Receive Date: 20150513
  Receipt Date: 20150513
  Transmission Date: 20150821
  Serious: Yes (Disabling, Other)
  Sender: FDA-Public Use
  Company Number: COL_19738_2015

PATIENT
  Age: 73 Year
  Sex: Female

DRUGS (1)
  1. MERIDOL MED CHX 0.2% (2 MG/ML CHLORHEXIDINDIGLUCONAT) [Suspect]
     Active Substance: CHLORHEXIDINE GLUCONATE
     Indication: PRODUCT USED FOR UNKNOWN INDICATION
     Dates: start: 20150408, end: 20150408

REACTIONS (1)
  - Deafness unilateral [None]

NARRATIVE: CASE EVENT DATE: 20150408
